FAERS Safety Report 8516586-1 (Version None)
Quarter: 2012Q3

REPORT INFORMATION
  Report Type: 
  Country: None (occurrence: None)
  Receive Date: 20120712
  Receipt Date: 20120712
  Transmission Date: 20120928
  Serious: Yes (Other)
  Sender: FDA-Public Use
  Company Number: None

PATIENT
  Sex: Female

DRUGS (1)
  1. AZITHROMYCIN [Suspect]
     Indication: SINUSITIS
     Dosage: 250 MG ONCE A DAY PO
     Route: 048
     Dates: start: 20120703, end: 20120706

REACTIONS (3)
  - PRURITUS GENERALISED [None]
  - VOMITING [None]
  - ABDOMINAL PAIN UPPER [None]
